FAERS Safety Report 23745859 (Version 1)
Quarter: 2024Q2

REPORT INFORMATION
  Report Type: Spontaneous
  Country: CA (occurrence: CA)
  Receive Date: 20240416
  Receipt Date: 20240416
  Transmission Date: 20240716
  Serious: Yes (Other)
  Sender: FDA-Public Use
  Company Number: CA-TEVA-VS-3181288

PATIENT
  Age: 76 Year
  Sex: Male

DRUGS (6)
  1. PEMETREXED [Suspect]
     Active Substance: PEMETREXED
     Indication: Non-small cell lung cancer
     Dosage: TIME INTERVAL: CYCLICAL: DOSAGE FORM:POWDER FOR SOLUTION INTRAVENOUS
     Route: 065
  2. PEMETREXED [Suspect]
     Active Substance: PEMETREXED
     Indication: Non-small cell lung cancer
     Dosage: TIME INTERVAL: CYCLICAL: DOSAGE FORM:POWDER FOR SOLUTION INTRAVENOUS
     Route: 065
  3. CARBOPLATIN [Suspect]
     Active Substance: CARBOPLATIN
     Indication: Non-small cell lung cancer
     Dosage: TIME INTERVAL: CYCLICAL: DOSAGE FORM:SOLUTION INTRAVENOUS
     Route: 065
  4. PEMBROLIZUMAB [Suspect]
     Active Substance: PEMBROLIZUMAB
     Indication: Non-small cell lung cancer
     Dosage: TIME INTERVAL: CYCLICAL
     Route: 065
  5. PEGFILGRASTIM [Concomitant]
     Active Substance: PEGFILGRASTIM
     Indication: Prophylaxis
  6. PREDNISONE [Concomitant]
     Active Substance: PREDNISONE
     Dosage: DOSE FORM: NOT SPECIFIED

REACTIONS (5)
  - Back pain [Recovered/Resolved]
  - Blood creatine increased [Recovered/Resolved]
  - Cytopenia [Recovered/Resolved]
  - Neoplasm progression [Recovered/Resolved]
  - Off label use [Recovered/Resolved]
